FAERS Safety Report 5241582-X (Version None)
Quarter: 2007Q1

REPORT INFORMATION
  Report Type: 
  Country: None (occurrence: None)
  Receive Date: 20070220
  Receipt Date: 20070207
  Transmission Date: 20070707
  Serious: Yes (Hospitalization)
  Sender: FDA-Public Use
  Company Number: FR-AVENTIS-200614612FR

PATIENT
  Age: 44 Year
  Sex: Male
  Weight: 75 kg

DRUGS (2)
  1. KETEK [Suspect]
     Indication: SINUSITIS
     Route: 048
     Dates: start: 20061210, end: 20061213
  2. SOLUPRED                           /00016201/ [Suspect]
     Indication: SINUSITIS
     Route: 048
     Dates: start: 20061210, end: 20061212

REACTIONS (2)
  - BONE PAIN [None]
  - MYALGIA [None]
